FAERS Safety Report 8131246-7 (Version None)
Quarter: 2012Q1

REPORT INFORMATION
  Report Type: 
  Country: None (occurrence: None)
  Receive Date: 20120210
  Receipt Date: 20120210
  Transmission Date: 20120608
  Serious: Yes (Other)
  Sender: FDA-Public Use
  Company Number: None

PATIENT
  Sex: Female
  Weight: 46.3 kg

DRUGS (10)
  1. LENALIDOMIDE [Suspect]
     Indication: B-CELL LYMPHOMA
     Dosage: 10 MG DAILY ORAL
     Route: 048
     Dates: start: 20091210, end: 20111025
  2. ESCITALOPRAM [Concomitant]
  3. ASPIRIN [Concomitant]
  4. VALACYCLOVIR [Concomitant]
  5. OXYCODONE HCL [Concomitant]
  6. MULTI-VITAMIN [Concomitant]
  7. DEXAMETHASONE [Suspect]
     Indication: B-CELL LYMPHOMA
     Dosage: 8 MG WEEKLY ORAL
     Route: 048
     Dates: start: 20091210, end: 20111025
  8. RITUXIMAB [Concomitant]
  9. GABAPENTIN [Concomitant]
  10. PRAVACHOL [Concomitant]

REACTIONS (3)
  - B-CELL LYMPHOMA [None]
  - ACUTE LYMPHOCYTIC LEUKAEMIA [None]
  - NEOPLASM PROGRESSION [None]
